FAERS Safety Report 7079113-4 (Version None)
Quarter: 2010Q4

REPORT INFORMATION
  Report Type: 
  Country: None (occurrence: None)
  Receive Date: 20101102
  Receipt Date: 20101027
  Transmission Date: 20110411
  Serious: Yes (Hospitalization)
  Sender: FDA-Public Use
  Company Number: A0791045A

PATIENT
  Age: 51 Year
  Sex: Male

DRUGS (1)
  1. AVANDIA [Suspect]
     Dosage: 2MG PER DAY
     Route: 048
     Dates: start: 20030901, end: 20060402

REACTIONS (2)
  - HYPERLIPIDAEMIA [None]
  - MYOCARDIAL INFARCTION [None]
